FAERS Safety Report 15743331 (Version 1)
Quarter: 2018Q4

REPORT INFORMATION
  Report Type: Spontaneous
  Country: US (occurrence: US)
  Receive Date: 20181220
  Receipt Date: 20181220
  Transmission Date: 20190205
  Serious: Yes (Life-Threatening, Hospitalization, Other)
  Sender: FDA-Public Use
  Company Number: US-LUPIN PHARMACEUTICALS INC.-2018-08676

PATIENT
  Age: 24 Year
  Sex: Male

DRUGS (6)
  1. FLUOXETINE [Suspect]
     Active Substance: FLUOXETINE HYDROCHLORIDE
     Indication: DEPRESSION
     Dosage: UNK (OVERDOSE)
     Route: 048
  2. RISPERIDONE. [Suspect]
     Active Substance: RISPERIDONE
     Indication: SCHIZOAFFECTIVE DISORDER
     Dosage: UNK (OVERDOSE)
     Route: 048
  3. CYPROHEPTADINE. [Suspect]
     Active Substance: CYPROHEPTADINE
     Indication: INSOMNIA
     Dosage: UNK (OVERDOSE)
     Route: 048
  4. BUPROPION HYDROCHLORIDE. [Suspect]
     Active Substance: BUPROPION HYDROCHLORIDE
     Indication: PRODUCT USED FOR UNKNOWN INDICATION
     Dosage: UNK (OVERDOSE)
     Route: 048
  5. TRAZODONE [Suspect]
     Active Substance: TRAZODONE HYDROCHLORIDE
     Indication: PRODUCT USED FOR UNKNOWN INDICATION
     Dosage: UNK (OVERDOSE)
     Route: 048
  6. OLANZAPINE. [Suspect]
     Active Substance: OLANZAPINE
     Indication: SCHIZOAFFECTIVE DISORDER
     Dosage: UNK (OVERDOSE)
     Route: 048

REACTIONS (6)
  - Serotonin syndrome [Recovered/Resolved]
  - Hypotension [Recovered/Resolved]
  - Rhabdomyolysis [Recovering/Resolving]
  - Acute kidney injury [Recovering/Resolving]
  - Pneumonia aspiration [Recovering/Resolving]
  - Intentional overdose [Unknown]
